FAERS Safety Report 4366424-6 (Version None)
Quarter: 2004Q2

REPORT INFORMATION
  Report Type: 
  Country: None (occurrence: None)
  Receive Date: 20040527
  Receipt Date: 20040317
  Transmission Date: 20050107
  Serious: Yes (Hospitalization)
  Sender: FDA-Public Use
  Company Number: US-BRISTOL-MYERS SQUIBB COMPANY-12536983

PATIENT
  Age: 77 Year
  Sex: Male
  Weight: 63 kg

DRUGS (11)
  1. ERBITUX [Suspect]
     Indication: COLON CANCER
     Dosage: DOSING ADMINISTERED ON MORNING OF 16-MAR-2004, THERAPY DURATION 10 MINUTES.
     Route: 042
     Dates: start: 20040316, end: 20040316
  2. BENADRYL [Concomitant]
     Indication: PREMEDICATION
     Route: 048
  3. PREVACID [Concomitant]
  4. MEGACE [Concomitant]
  5. VIOXX [Concomitant]
  6. HYTRIN [Concomitant]
  7. DILAUDID [Concomitant]
  8. SODIUM CHLORIDE 0.9% [Concomitant]
  9. IRINOTECAN [Concomitant]
     Dosage: 16-MAR-2004 EVENING
     Dates: start: 20040316, end: 20040316
  10. LEUCOVORIN CALCIUM [Concomitant]
     Dosage: 16-MAR-2004 EVENING
     Dates: start: 20040316, end: 20040316
  11. FLUOROURACIL [Concomitant]
     Dosage: OVER 46 HOURS-INITIATED 16-MAR-2004 EVENING.
     Dates: start: 20040316

REACTIONS (3)
  - COUGH [None]
  - DRY MOUTH [None]
  - INFUSION RELATED REACTION [None]
